FAERS Safety Report 21591671 (Version 1)
Quarter: 2022Q4

REPORT INFORMATION
  Report Type: Spontaneous
  Country: US (occurrence: US)
  Receive Date: 20221114
  Receipt Date: 20221114
  Transmission Date: 20230113
  Serious: Yes (Death, Other)
  Sender: FDA-Public Use
  Company Number: US-FreseniusKabi-FK202215362

PATIENT
  Age: 42 Year
  Sex: Male

DRUGS (2)
  1. HEPARIN [Suspect]
     Active Substance: HEPARIN SODIUM
     Indication: Pulmonary embolism
     Dosage: 80 UNITS/KG
  2. HEPARIN [Suspect]
     Active Substance: HEPARIN SODIUM
     Dosage: 18 UNIT/KG/H

REACTIONS (1)
  - Subarachnoid haemorrhage [Fatal]
